FAERS Safety Report 14073819 (Version 1)
Quarter: 2017Q4

REPORT INFORMATION
  Report Type: Spontaneous
  Country: US (occurrence: US)
  Receive Date: 20171010
  Receipt Date: 20171010
  Transmission Date: 20180321
  Serious: No
  Sender: FDA-Public Use
  Company Number: US-JNJFOC-20170911065

PATIENT
  Age: 82 Year
  Sex: Female
  Weight: 58.97 kg

DRUGS (5)
  1. DIPHENHYDRAMINE HYDROCHLORIDE. [Concomitant]
     Active Substance: DIPHENHYDRAMINE HYDROCHLORIDE
     Indication: SLEEP DISORDER THERAPY
     Route: 065
  2. METAMUCIL [Concomitant]
     Active Substance: PLANTAGO SEED
     Indication: IRRITABLE BOWEL SYNDROME
     Route: 065
  3. VALPROATE SODIUM. [Concomitant]
     Active Substance: VALPROATE SODIUM
     Indication: NUTRITIONAL SUPPLEMENTATION
     Route: 065
  4. TYLENOL 8 HR ARTHRITIS PAIN [Suspect]
     Active Substance: ACETAMINOPHEN
     Indication: PAIN IN EXTREMITY
     Dosage: 1-4, 1-2 AT A TIME DAILY
     Route: 048
  5. TYLENOL 8 HR ARTHRITIS PAIN [Suspect]
     Active Substance: ACETAMINOPHEN
     Indication: BACK PAIN
     Dosage: 1-4, 1-2 AT A TIME DAILY
     Route: 048

REACTIONS (3)
  - Inappropriate schedule of drug administration [Unknown]
  - Abdominal pain upper [Recovering/Resolving]
  - Incorrect dose administered [Unknown]

NARRATIVE: CASE EVENT DATE: 20170905
